FAERS Safety Report 6941813-1 (Version None)
Quarter: 2010Q3

REPORT INFORMATION
  Report Type: 
  Country: None (occurrence: None)
  Receive Date: 20100826
  Receipt Date: 20100819
  Transmission Date: 20110219
  Serious: Yes (Other)
  Sender: FDA-Public Use
  Company Number: JP-PFIZER INC-2010104299

PATIENT

DRUGS (1)
  1. SOLU-CORTEF [Suspect]
     Dosage: 100 MG, 1X/DAY
     Route: 041

REACTIONS (1)
  - BLOOD GLUCOSE INCREASED [None]
